FAERS Safety Report 20733480 (Version 4)
Quarter: 2022Q2

REPORT INFORMATION
  Report Type: Report from Study
  Country: NL (occurrence: NL)
  Receive Date: 20220421
  Receipt Date: 20220621
  Transmission Date: 20220721
  Serious: Yes (Hospitalization, Other)
  Sender: FDA-Public Use
  Company Number: NL-ABBVIE-22K-114-4351122-00

PATIENT
  Sex: Male

DRUGS (8)
  1. CARBIDOPA\LEVODOPA [Suspect]
     Active Substance: CARBIDOPA\LEVODOPA
     Indication: Parkinson^s disease
     Dosage: MD: 9.2ML, CD: 4.2ML/H, ED: 1.7ML; REMAINS AT 16 HOURS
     Route: 050
  2. CARBIDOPA\LEVODOPA [Suspect]
     Active Substance: CARBIDOPA\LEVODOPA
     Dosage: CD: 4.3ML/H; REMAINS AT 16 HOURS
     Route: 050
  3. CARBIDOPA\LEVODOPA [Suspect]
     Active Substance: CARBIDOPA\LEVODOPA
     Dosage: MD: 9.2ML, CD: 4.3ML/H, ED: 1.7ML; REMAINS AT 16 HOURS
     Route: 050
  4. CARBIDOPA\LEVODOPA [Suspect]
     Active Substance: CARBIDOPA\LEVODOPA
     Route: 050
     Dates: start: 20170815
  5. CARBIDOPA\LEVODOPA [Suspect]
     Active Substance: CARBIDOPA\LEVODOPA
     Route: 050
  6. CARBIDOPA\LEVODOPA [Suspect]
     Active Substance: CARBIDOPA\LEVODOPA
     Dosage: MD: 9.2 ML, CD: 4.1 ML/H, ED: 1.7 ML
     Route: 050
  7. POLYETHYLENE GLYCOLS [Concomitant]
     Active Substance: POLYETHYLENE GLYCOLS
     Indication: Bowel movement irregularity
  8. CARBIDOPA\LEVODOPA [Concomitant]
     Active Substance: CARBIDOPA\LEVODOPA
     Indication: Parkinson^s disease
     Dosage: 10 PM

REACTIONS (16)
  - Dyschezia [Recovered/Resolved]
  - Rehabilitation therapy [Not Recovered/Not Resolved]
  - Ileus [Unknown]
  - Internal hernia [Unknown]
  - Device breakage [Unknown]
  - Fluid intake reduced [Not Recovered/Not Resolved]
  - Daydreaming [Not Recovered/Not Resolved]
  - Device dislocation [Not Recovered/Not Resolved]
  - Vomiting [Unknown]
  - Constipation [Unknown]
  - Therapeutic product effect decreased [Recovered/Resolved]
  - Gait disturbance [Not Recovered/Not Resolved]
  - Muscle rigidity [Not Recovered/Not Resolved]
  - Dyskinesia [Recovering/Resolving]
  - On and off phenomenon [Not Recovered/Not Resolved]
  - Constipation [Not Recovered/Not Resolved]

NARRATIVE: CASE EVENT DATE: 20220405
